FAERS Safety Report 18986653 (Version 2)
Quarter: 2021Q2

REPORT INFORMATION
  Report Type: Spontaneous
  Country: US (occurrence: US)
  Receive Date: 20210309
  Receipt Date: 20210412
  Transmission Date: 20210717
  Serious: Yes (Hospitalization)
  Sender: FDA-Public Use
  Company Number: US-NOVOPROD-790239

PATIENT
  Age: 65 Year
  Sex: Female

DRUGS (2)
  1. NOVOLOG [Suspect]
     Active Substance: INSULIN ASPART
     Indication: TYPE 2 DIABETES MELLITUS
     Dosage: USUALLY 1?4 UNITS  DAILY
     Route: 058
     Dates: start: 2011
  2. NOVOLOG [Suspect]
     Active Substance: INSULIN ASPART
     Dosage: 18 UNITS
     Route: 058

REACTIONS (4)
  - Diabetes mellitus inadequate control [Recovered/Resolved]
  - Product quality issue [Unknown]
  - Visual impairment [Recovered/Resolved]
  - Blood glucose increased [Unknown]

NARRATIVE: CASE EVENT DATE: 20201220
